FAERS Safety Report 17347342 (Version 1)
Quarter: 2020Q1

REPORT INFORMATION
  Report Type: Report from Study
  Country: US (occurrence: US)
  Receive Date: 20200129
  Receipt Date: 20200129
  Transmission Date: 20200409
  Serious: No
  Sender: FDA-Public Use
  Company Number: US-EXELIXIS-CABO-19022267

PATIENT
  Sex: Female

DRUGS (2)
  1. CABOMETYX [Suspect]
     Active Substance: CABOZANTINIB S-MALATE
     Indication: RENAL CANCER
     Dosage: 40 MG, QD (AM WITHOUT FOOD)
     Dates: start: 20190618
  2. CABOMETYX [Suspect]
     Active Substance: CABOZANTINIB S-MALATE
     Dosage: 40 MG, QD (AM WITHOUT FOOD)

REACTIONS (7)
  - Hypotension [Unknown]
  - Stomatitis [Unknown]
  - Memory impairment [Unknown]
  - Product dose omission [Unknown]
  - Candida infection [Unknown]
  - Nausea [Unknown]
  - Decreased appetite [Unknown]
